FAERS Safety Report 20508241 (Version 2)
Quarter: 2022Q1

REPORT INFORMATION
  Report Type: Report from Study
  Country: CA (occurrence: CA)
  Receive Date: 20220223
  Receipt Date: 20220308
  Transmission Date: 20220423
  Serious: Yes (Hospitalization)
  Sender: FDA-Public Use
  Company Number: CA-BRISTOL-MYERS SQUIBB COMPANY-BMS-2022-024130

PATIENT
  Age: 63 Year
  Sex: Male
  Weight: 120.6 kg

DRUGS (9)
  1. NIVOLUMAB [Suspect]
     Active Substance: NIVOLUMAB
     Indication: Metastatic renal cell carcinoma
     Dosage: UNK
     Route: 065
     Dates: start: 20220112, end: 20220112
  2. IPILIMUMAB [Suspect]
     Active Substance: IPILIMUMAB
     Indication: Metastatic renal cell carcinoma
     Dosage: UNK
     Route: 065
     Dates: start: 20220112, end: 20220112
  3. ROSUVASTATIN [Concomitant]
     Active Substance: ROSUVASTATIN
     Indication: Hypertension
     Dosage: 10 MILLIGRAM, QD
     Route: 048
     Dates: start: 2019
  4. PERINDOPRIL [Concomitant]
     Active Substance: PERINDOPRIL
     Indication: Hypertension
     Dosage: 8 MILLIGRAM, QD
     Route: 048
     Dates: start: 2019
  5. CHLORTHALIDONE [Concomitant]
     Active Substance: CHLORTHALIDONE
     Indication: Hypertension
     Dosage: 50 MILLIGRAM, QD
     Route: 048
     Dates: start: 202106
  6. ADVIL [Concomitant]
     Active Substance: IBUPROFEN
     Indication: Arthritis
     Dosage: 1 TO 2 TAB, PRN
     Route: 048
     Dates: start: 1998
  7. HERBALS\TURMERIC [Concomitant]
     Active Substance: HERBALS\TURMERIC
     Indication: Arthritis
     Dosage: 1 TAB, PRN
     Route: 048
  8. COVID-19 VACCINE [Concomitant]
     Indication: Prophylaxis
     Dosage: COVID-19 PFIZER, 1ST DOSE, ONCE
     Route: 030
     Dates: start: 20210503, end: 20210503
  9. COVID-19 VACCINE [Concomitant]
     Dosage: COVID-19 PFIZER, 2ND DOSE, ONCE
     Route: 030
     Dates: start: 20210821, end: 20210821

REACTIONS (1)
  - Anaemia [Not Recovered/Not Resolved]

NARRATIVE: CASE EVENT DATE: 20220214
